FAERS Safety Report 9705324 (Version 5)
Quarter: 2014Q1

REPORT INFORMATION
  Report Type: Spontaneous
  Country: US (occurrence: US)
  Receive Date: 20131122
  Receipt Date: 20140210
  Transmission Date: 20141002
  Serious: Yes (Other)
  Sender: FDA-Public Use
  Company Number: US-BAYER-2013-140186

PATIENT
  Sex: Female

DRUGS (1)
  1. CLIMARA [Suspect]
     Indication: HOT FLUSH
     Dosage: UNK
     Dates: start: 2013

REACTIONS (13)
  - Product adhesion issue [None]
  - Product adhesion issue [None]
  - Product adhesion issue [None]
  - Uterine neoplasm [None]
  - Tumour pain [None]
  - Weight increased [None]
  - Stress [None]
  - Vaginal discharge [None]
  - Anorectal discomfort [None]
  - Anal haemorrhage [None]
  - Appendix cancer [None]
  - Application site pain [None]
  - Application site erythema [None]
